FAERS Safety Report 4753997-4 (Version None)
Quarter: 2005Q3

REPORT INFORMATION
  Report Type: 
  Country: None (occurrence: None)
  Receive Date: 20050826
  Receipt Date: 20041215
  Transmission Date: 20060218
  Serious: Yes (Hospitalization, Disabling)
  Sender: FDA-Public Use
  Company Number: US-MERCK-0412USA01984

PATIENT
  Age: 81 Year
  Sex: Male
  Weight: 91 kg

DRUGS (5)
  1. VIOXX [Suspect]
     Indication: RHEUMATOID ARTHRITIS
     Route: 048
     Dates: start: 20010423, end: 20030201
  2. VASOTEC RPD [Concomitant]
     Indication: HYPERTENSION
     Route: 065
     Dates: start: 19950101
  3. TEGRETOL [Concomitant]
     Route: 065
  4. ZANTAC [Concomitant]
     Route: 065
  5. INSULIN [Concomitant]
     Route: 065

REACTIONS (15)
  - BLOOD URINE PRESENT [None]
  - CAROTID ARTERY STENOSIS [None]
  - CEREBRAL INFARCTION [None]
  - CEREBROVASCULAR ACCIDENT [None]
  - COAGULOPATHY [None]
  - EMOTIONAL DISTRESS [None]
  - GOUT [None]
  - HAEMORRHAGE [None]
  - HEMIPLEGIA [None]
  - INCONTINENCE [None]
  - LACUNAR INFARCTION [None]
  - QRS AXIS ABNORMAL [None]
  - THROMBOSIS [None]
  - TRANSIENT ISCHAEMIC ATTACK [None]
  - VENTRICULAR HYPERTROPHY [None]
